FAERS Safety Report 12153163 (Version 3)
Quarter: 2016Q4

REPORT INFORMATION
  Report Type: Spontaneous
  Country: US (occurrence: US)
  Receive Date: 20160305
  Receipt Date: 20161118
  Transmission Date: 20170207
  Serious: No
  Sender: FDA-Public Use
  Company Number: US-BIOGEN-2016BI00195829

PATIENT
  Sex: Female

DRUGS (1)
  1. AVONEX [Suspect]
     Active Substance: INTERFERON BETA-1A
     Indication: MULTIPLE SCLEROSIS
     Route: 065
     Dates: start: 20141103, end: 201603

REACTIONS (14)
  - Ear infection [Not Recovered/Not Resolved]
  - Nervousness [Not Recovered/Not Resolved]
  - Asthenia [Recovered/Resolved]
  - Abdominal discomfort [Unknown]
  - Personality disorder [Unknown]
  - Gastrointestinal disorder [Not Recovered/Not Resolved]
  - Malaise [Unknown]
  - Headache [Recovered/Resolved]
  - Peripheral swelling [Not Recovered/Not Resolved]
  - Pyrexia [Recovered/Resolved]
  - Joint crepitation [Not Recovered/Not Resolved]
  - Sinusitis [Not Recovered/Not Resolved]
  - Influenza like illness [Recovered/Resolved]
  - Psychomotor hyperactivity [Unknown]
